FAERS Safety Report 11810605 (Version 1)
Quarter: 2015Q4

REPORT INFORMATION
  Report Type: Spontaneous
  Country: US (occurrence: None)
  Receive Date: 20151207
  Receipt Date: 20151207
  Transmission Date: 20160305
  Serious: No
  Sender: FDA-Public Use
  Company Number: None

PATIENT
  Age: 84 Year
  Sex: Male

DRUGS (21)
  1. ZOLPIDEM [Concomitant]
     Active Substance: ZOLPIDEM\ZOLPIDEM TARTRATE
  2. SUCRALFATE. [Concomitant]
     Active Substance: SUCRALFATE
  3. MIRTAZAPINE. [Concomitant]
     Active Substance: MIRTAZAPINE
  4. METFORMIN [Concomitant]
     Active Substance: METFORMIN HYDROCHLORIDE
  5. FOLIC ACID. [Concomitant]
     Active Substance: FOLIC ACID
  6. AMLODIPINE [Concomitant]
     Active Substance: AMLODIPINE BESYLATE
  7. REVLIMID [Concomitant]
     Active Substance: LENALIDOMIDE
  8. NEXIUM [Concomitant]
     Active Substance: ESOMEPRAZOLE MAGNESIUM
  9. FARYDAK [Suspect]
     Active Substance: PANOBINOSTAT
     Indication: PLASMA CELL MYELOMA
     Route: 048
     Dates: start: 20150918, end: 20151114
  10. PROCRIT [Concomitant]
     Active Substance: ERYTHROPOIETIN
  11. TEMAZEPAM. [Concomitant]
     Active Substance: TEMAZEPAM
  12. SIMVASTATIN. [Concomitant]
     Active Substance: SIMVASTATIN
  13. PANTOPRAZOLE [Concomitant]
     Active Substance: PANTOPRAZOLE SODIUM
  14. POLYETH GLYC [Concomitant]
     Active Substance: POLYETHYLENE GLYCOLS
  15. METOPROLOL TARTATE [Concomitant]
     Active Substance: METOPROLOL TARTRATE
  16. ENALAPRIL [Concomitant]
     Active Substance: ENALAPRIL
  17. DOXAZOSIN [Concomitant]
     Active Substance: DOXAZOSIN\DOXAZOSIN MESYLATE
  18. DEXAMETHASON [Concomitant]
     Active Substance: DEXAMETHASONE
  19. ALPRAZOLAM. [Concomitant]
     Active Substance: ALPRAZOLAM
  20. ALLOPURINOL. [Concomitant]
     Active Substance: ALLOPURINOL
  21. MELOXICAM. [Concomitant]
     Active Substance: MELOXICAM

REACTIONS (1)
  - Therapy cessation [None]

NARRATIVE: CASE EVENT DATE: 20151114
